FAERS Safety Report 22081320 (Version 2)
Quarter: 2023Q1

REPORT INFORMATION
  Report Type: Spontaneous
  Country: US (occurrence: US)
  Receive Date: 20230309
  Receipt Date: 20230318
  Transmission Date: 20230418
  Serious: Yes (Hospitalization, Other)
  Sender: FDA-Public Use
  Company Number: US-Accord-302465

PATIENT
  Age: 54 Year
  Sex: Female

DRUGS (6)
  1. METHOTREXATE [Suspect]
     Active Substance: METHOTREXATE
     Indication: Central nervous system lymphoma
     Dosage: 4.2 G/M2, CYCLE 12 OF HIGH-DOSE, RECEIVED 10 CYCLE
     Route: 042
  2. RITUXIMAB [Suspect]
     Active Substance: RITUXIMAB
     Indication: Central nervous system lymphoma
  3. LEVETIRACETAM [Concomitant]
     Active Substance: LEVETIRACETAM
     Dosage: HOME MEDICATIONS
  4. APIXABAN [Concomitant]
     Active Substance: APIXABAN
     Dosage: HOME MEDICATIONS
  5. METHOTREXATE [Suspect]
     Active Substance: METHOTREXATE
     Indication: Central nervous system lymphoma
     Dosage: 4.88 G/M2,CYCLE 12 OF HIGH-DOSE
     Route: 042
  6. METHOTREXATE [Suspect]
     Active Substance: METHOTREXATE
     Indication: Central nervous system lymphoma
     Dosage: 4.96 G/M2,CYCLE 12 OF HIGH-DOSE,??ON DAY 1 (12 CYCLE)
     Route: 042

REACTIONS (5)
  - Acute kidney injury [Recovered/Resolved]
  - Tubulointerstitial nephritis [Recovered/Resolved]
  - Toxicity to various agents [Unknown]
  - Nephropathy toxic [Recovered/Resolved]
  - Crystal nephropathy [Recovered/Resolved]
